FAERS Safety Report 5974410-5 (Version None)
Quarter: 2008Q4

REPORT INFORMATION
  Report Type: 
  Country: None (occurrence: None)
  Receive Date: 20081128
  Receipt Date: 20081118
  Transmission Date: 20090506
  Serious: Yes (Death, Life-Threatening)
  Sender: FDA-Public Use
  Company Number: 004684

PATIENT
  Age: 43 Year
  Sex: Male

DRUGS (5)
  1. BUSULFEX [Suspect]
     Indication: STEM CELL TRANSPLANT
  2. FLUDARABINE PHOSPHATE [Concomitant]
  3. CYCLOSPORINE [Concomitant]
  4. FILGRASTIM (FILGRASTIM) [Concomitant]
  5. METHOTREXATE [Concomitant]

REACTIONS (15)
  - ANOREXIA [None]
  - BLOOD CREATININE INCREASED [None]
  - BONE MARROW TRANSPLANT REJECTION [None]
  - CELLULITIS [None]
  - CEREBRAL HAEMORRHAGE [None]
  - CONVULSION [None]
  - CYSTITIS HAEMORRHAGIC [None]
  - DEPRESSED LEVEL OF CONSCIOUSNESS [None]
  - HISTIOCYTOSIS HAEMATOPHAGIC [None]
  - MALAISE [None]
  - NAUSEA [None]
  - PANCYTOPENIA [None]
  - PNEUMONIA [None]
  - STOMATITIS [None]
  - VENOOCCLUSIVE LIVER DISEASE [None]
